FAERS Safety Report 17064107 (Version 1)
Quarter: 2019Q4

REPORT INFORMATION
  Report Type: Spontaneous
  Country: CA (occurrence: CA)
  Receive Date: 20191122
  Receipt Date: 20191122
  Transmission Date: 20200122
  Serious: Yes (Other)
  Sender: FDA-Public Use
  Company Number: CA-PFIZER INC-2019502552

PATIENT
  Age: 63 Year
  Sex: Male

DRUGS (8)
  1. SULFASALAZINE. [Suspect]
     Active Substance: SULFASALAZINE
     Indication: RHEUMATOID ARTHRITIS
     Dosage: UNK
     Route: 048
  2. PLAQUENIL [Suspect]
     Active Substance: HYDROXYCHLOROQUINE SULFATE
     Dosage: UNK
  3. ACTEMRA [Suspect]
     Active Substance: TOCILIZUMAB
     Dosage: 162 MG, WEEKLY (1 EVERY 1 WEEK)
     Route: 058
  4. APO-PREDNISONE [Suspect]
     Active Substance: PREDNISONE
     Dosage: UNK
  5. ARAVA [Suspect]
     Active Substance: LEFLUNOMIDE
     Dosage: UNK
  6. METHOTREXATE SODIUM. [Suspect]
     Active Substance: METHOTREXATE SODIUM
     Indication: RHEUMATOID ARTHRITIS
     Dosage: 25 MG, UNK (4 EVERY 1 WEEK(S))
  7. APO-HYDROXYQUINE [Suspect]
     Active Substance: HYDROXYCHLOROQUINE SULFATE
     Dosage: UNK
  8. SIMPONI [Suspect]
     Active Substance: GOLIMUMAB
     Dosage: UNK
     Route: 058

REACTIONS (3)
  - Diverticulitis [Unknown]
  - Therapeutic product effect incomplete [Unknown]
  - Therapeutic response decreased [Unknown]
